FAERS Safety Report 9779826 (Version 1)
Quarter: 2013Q4

REPORT INFORMATION
  Report Type: Spontaneous
  Country: NL (occurrence: NL)
  Receive Date: 20131223
  Receipt Date: 20131223
  Transmission Date: 20140711
  Serious: Yes (Other)
  Sender: FDA-Public Use
  Company Number: NL-GLAXOSMITHKLINE-B0955046A

PATIENT
  Age: 15 Year
  Sex: 0

DRUGS (1)
  1. SEROXAT [Suspect]
     Indication: PRODUCT USED FOR UNKNOWN INDICATION
     Dosage: 2ML UNKNOWN
     Route: 048

REACTIONS (3)
  - Anaphylactic shock [Unknown]
  - Pruritus [Unknown]
  - Rash macular [Unknown]
